FAERS Safety Report 20456850 (Version 2)
Quarter: 2022Q1

REPORT INFORMATION
  Report Type: Spontaneous
  Country: FR (occurrence: FR)
  Receive Date: 20220210
  Receipt Date: 20220223
  Transmission Date: 20220423
  Serious: Yes (Other)
  Sender: FDA-Public Use
  Company Number: FR-BIOGARAN-B22000120

PATIENT
  Age: 72 Year
  Sex: Male

DRUGS (17)
  1. PREGABALIN [Suspect]
     Active Substance: PREGABALIN
     Indication: Neck pain
     Dosage: 75 MG
     Route: 048
     Dates: start: 2020
  2. PREGABALIN [Suspect]
     Active Substance: PREGABALIN
     Indication: Spondylitis
     Dosage: 300 MG (PROGRESSIVELY INCREASED FROM 75 MG DAILY UNTIL 300 MG)
     Route: 048
  3. PREGABALIN [Suspect]
     Active Substance: PREGABALIN
     Dosage: 50 MG (PROGRESSIVELY DECREASED)
     Route: 048
  4. ACETAMINOPHEN\CODEINE PHOSPHATE [Concomitant]
     Active Substance: ACETAMINOPHEN\CODEINE PHOSPHATE
     Indication: Pain
     Dosage: OCCASIONNAL USE
     Route: 065
  5. ACETAMINOPHEN\CODEINE PHOSPHATE [Concomitant]
     Active Substance: ACETAMINOPHEN\CODEINE PHOSPHATE
     Indication: Inflammation
  6. IBUPROFEN [Concomitant]
     Active Substance: IBUPROFEN
     Indication: Pain
     Dosage: OCCASIONNAL USE
     Route: 065
  7. IBUPROFEN [Concomitant]
     Active Substance: IBUPROFEN
     Indication: Inflammation
  8. ZOLMITRIPTAN [Concomitant]
     Active Substance: ZOLMITRIPTAN
     Indication: Migraine
     Dosage: 2 TO 3 TABLET DAILY FOR 3 DAYS AT MAXIMUM ABOUT 2 TO 3 TIME A YEAR
     Route: 065
  9. DOLIPRANE [Concomitant]
     Active Substance: ACETAMINOPHEN
     Indication: Inflammation
     Dosage: OCCASIONNAL USE
     Route: 065
  10. DOLIPRANE [Concomitant]
     Active Substance: ACETAMINOPHEN
     Indication: Pain
  11. ALPRAZOLAM [Concomitant]
     Active Substance: ALPRAZOLAM
     Dosage: 25 MG, DAILY (EVERY EVENING)
     Route: 065
  12. DEXKETOPROFEN\TRAMADOL [Concomitant]
     Active Substance: DEXKETOPROFEN\TRAMADOL
     Indication: Back pain
     Dosage: UNSPECIFIED REGIMEN 2 TIME A YEAR MAXIMUM
     Route: 065
  13. OMEPRAZOLE [Concomitant]
     Active Substance: OMEPRAZOLE
     Indication: Dyspepsia
     Dosage: 20 MG, DAILY (EVERY MORNING FOR 10 YEARS)
     Route: 065
  14. OMEPRAZOLE [Concomitant]
     Active Substance: OMEPRAZOLE
     Indication: Gastrooesophageal sphincter insufficiency
  15. ACETAMINOPHEN\OPIUM [Concomitant]
     Active Substance: ACETAMINOPHEN\OPIUM
     Dosage: UNK
  16. XARELTO [Concomitant]
     Active Substance: RIVAROXABAN
     Dosage: UNK
  17. BETAHISTINE [Concomitant]
     Active Substance: BETAHISTINE
     Dosage: UNK

REACTIONS (3)
  - Deep vein thrombosis [Recovered/Resolved]
  - Product use in unapproved indication [Unknown]
  - Medication error [Unknown]

NARRATIVE: CASE EVENT DATE: 20200925
